FAERS Safety Report 4770935-9 (Version None)
Quarter: 2005Q3

REPORT INFORMATION
  Report Type: 
  Country: None (occurrence: None)
  Receive Date: 20050914
  Receipt Date: 20050831
  Transmission Date: 20060218
  Serious: Yes (Hospitalization, Disabling)
  Sender: FDA-Public Use
  Company Number: S05-UKI-03314-01

PATIENT
  Age: 33 Year
  Sex: Female

DRUGS (9)
  1. CIPRALEX (ESCITALOPRAM) [Suspect]
     Indication: DEPRESSION
     Dosage: 20 MG PO
     Route: 048
     Dates: start: 20050401
  2. GRAINSETRON [Suspect]
     Indication: NAUSEA
     Dosage: 2 MG DAILY SC
     Route: 058
     Dates: start: 20050624
  3. FELDENE [Concomitant]
  4. OXYBUTYNIN [Concomitant]
  5. GABAPENTIN [Concomitant]
  6. LORAZEPAM [Concomitant]
  7. LOPERAMIDE [Concomitant]
  8. LEVOMEPROMAZINE [Concomitant]
  9. METRONIDAZOLE [Concomitant]

REACTIONS (2)
  - BLOOD MAGNESIUM DECREASED [None]
  - GRAND MAL CONVULSION [None]
